FAERS Safety Report 9455835 (Version 2)
Quarter: 2013Q3

REPORT INFORMATION
  Report Type: Spontaneous
  Country: CH (occurrence: None)
  Receive Date: 20130808
  Receipt Date: 20130821
  Transmission Date: 20140515
  Serious: Yes (Other)
  Sender: FDA-Public Use
  Company Number: 20130420

PATIENT
  Age: 21 Year
  Sex: Female

DRUGS (1)
  1. FERINJECT [Suspect]
     Indication: IRON DEFICIENCY
     Dosage: 500 MG IN 250 ML NACL
     Dates: start: 20130618, end: 20130618

REACTIONS (8)
  - Dyspnoea [None]
  - Cough [None]
  - Headache [None]
  - Wheezing [None]
  - Pruritus [None]
  - Abdominal pain upper [None]
  - Infusion related reaction [None]
  - Hypersensitivity [None]
